FAERS Safety Report 9253359 (Version 2)
Quarter: 2013Q2

REPORT INFORMATION
  Report Type: Spontaneous
  Country: DE (occurrence: DE)
  Receive Date: 20130425
  Receipt Date: 20130613
  Transmission Date: 20140414
  Serious: Yes (Other)
  Sender: FDA-Public Use
  Company Number: DE-ROCHE-1218036

PATIENT
  Sex: Female
  Weight: 70 kg

DRUGS (2)
  1. ROACTEMRA [Suspect]
     Indication: RHEUMATOID ARTHRITIS
     Route: 042
  2. ROACTEMRA [Suspect]
     Route: 042
     Dates: end: 20130604

REACTIONS (2)
  - Hyperventilation [Recovered/Resolved]
  - Conversion disorder [Recovered/Resolved]
